FAERS Safety Report 4805672-5 (Version None)
Quarter: 2005Q4

REPORT INFORMATION
  Report Type: 
  Country: None (occurrence: None)
  Receive Date: 20051021
  Receipt Date: 20051012
  Transmission Date: 20060501
  Serious: Yes (Other)
  Sender: FDA-Public Use
  Company Number: PHBS2005AU15050

PATIENT
  Age: 43 Year
  Sex: Male

DRUGS (1)
  1. CLOZAPINE [Suspect]
     Indication: PSYCHOTIC DISORDER
     Route: 065
     Dates: start: 19940101

REACTIONS (12)
  - AKATHISIA [None]
  - BRADYKINESIA [None]
  - CATATONIA [None]
  - DISTURBANCE IN ATTENTION [None]
  - MASKED FACIES [None]
  - MOVEMENT DISORDER [None]
  - MUSCLE RIGIDITY [None]
  - MYOCLONUS [None]
  - NERVE STIMULATION TEST ABNORMAL [None]
  - POSTURE ABNORMAL [None]
  - SPEECH DISORDER [None]
  - UNRESPONSIVE TO PAIN STIMULI [None]
